FAERS Safety Report 10994802 (Version 1)
Quarter: 2015Q2

REPORT INFORMATION
  Report Type: Report from Study
  Country: CN (occurrence: CN)
  Receive Date: 20150407
  Receipt Date: 20150407
  Transmission Date: 20150821
  Serious: Yes (Death)
  Sender: FDA-Public Use
  Company Number: CN-BAXTER-2015BAX013026

PATIENT

DRUGS (1)
  1. SODIUM LACTATE RINGER^S INJECTION 500ML [Suspect]
     Active Substance: RINGER^S SOLUTION, LACTATED
     Indication: PLASMA EXPANDER TRANSFUSION
     Dosage: AVERAGE VOLUME OF 5884 ML/24 HOURS
     Route: 042

REACTIONS (1)
  - Death [Fatal]
